FAERS Safety Report 15109007 (Version 1)
Quarter: 2018Q3

REPORT INFORMATION
  Report Type: Spontaneous
  Country: US (occurrence: US)
  Receive Date: 20180705
  Receipt Date: 20180705
  Transmission Date: 20181010
  Serious: No
  Sender: FDA-Public Use
  Company Number: US-GLENMARK PHARMACEUTICALS-2018GMK035204

PATIENT

DRUGS (2)
  1. NYAMYC [Concomitant]
     Active Substance: NYSTATIN
     Indication: BODY TINEA
     Dosage: UNK
     Route: 061
  2. CLOTRIMAZOLE. [Suspect]
     Active Substance: CLOTRIMAZOLE
     Indication: BODY TINEA
     Dosage: UNK, BID
     Route: 061

REACTIONS (7)
  - Condition aggravated [Not Recovered/Not Resolved]
  - Chromaturia [Not Recovered/Not Resolved]
  - Scratch [Not Recovered/Not Resolved]
  - Burning sensation [Not Recovered/Not Resolved]
  - Pruritus [Not Recovered/Not Resolved]
  - Drug ineffective [Unknown]
  - Contusion [Unknown]
